FAERS Safety Report 5141405-3 (Version None)
Quarter: 2006Q4

REPORT INFORMATION
  Report Type: 
  Country: None (occurrence: None)
  Receive Date: 20061101
  Receipt Date: 20061025
  Transmission Date: 20070319
  Serious: Yes (Life-Threatening, Hospitalization, Other)
  Sender: FDA-Public Use
  Company Number: GB-GLAXOSMITHKLINE-B0444583A

PATIENT
  Age: 42 Year
  Sex: Male
  Weight: 70 kg

DRUGS (3)
  1. BUPROPION HYDROCHLORIDE [Suspect]
     Dosage: 2TAB PER DAY
     Route: 048
     Dates: start: 20060807, end: 20060822
  2. PREDNISOLONE [Concomitant]
  3. TRANEXAMIC ACID [Concomitant]

REACTIONS (1)
  - IDIOPATHIC THROMBOCYTOPENIC PURPURA [None]
